FAERS Safety Report 19809325 (Version 5)
Quarter: 2021Q4

REPORT INFORMATION
  Report Type: Report from Study
  Country: US (occurrence: US)
  Receive Date: 20210909
  Receipt Date: 20211213
  Transmission Date: 20220303
  Serious: Yes (Other)
  Sender: FDA-Public Use
  Company Number: US-UCBSA-2021033120

PATIENT
  Sex: Female
  Weight: 61.4 kg

DRUGS (2)
  1. CERTOLIZUMAB PEGOL [Suspect]
     Active Substance: CERTOLIZUMAB PEGOL
     Indication: Rheumatoid arthritis
     Dosage: 400 MILLIGRAM, EV 4 WEEKS
     Route: 058
     Dates: start: 20210603, end: 2021
  2. CERTOLIZUMAB PEGOL [Suspect]
     Active Substance: CERTOLIZUMAB PEGOL
     Dosage: 400 MILLIGRAM, EV 4 WEEKS
     Route: 058
     Dates: start: 2021, end: 202110

REACTIONS (7)
  - COVID-19 [Recovering/Resolving]
  - Migraine [Not Recovered/Not Resolved]
  - Needle issue [Unknown]
  - Injection site pain [Unknown]
  - Infection [Unknown]
  - Ear infection [Recovered/Resolved]
  - Eustachian tube obstruction [Recovered/Resolved]

NARRATIVE: CASE EVENT DATE: 20210101
